FAERS Safety Report 25829297 (Version 5)
Quarter: 2025Q4

REPORT INFORMATION
  Report Type: Spontaneous
  Country: US (occurrence: US)
  Receive Date: 20250922
  Receipt Date: 20251020
  Transmission Date: 20260118
  Serious: No
  Sender: SANOFI AVENTIS
  Company Number: US-SANOFI-02656736

PATIENT
  Age: 61 Year
  Sex: Female

DRUGS (1)
  1. TOUJEO [Suspect]
     Active Substance: INSULIN GLARGINE
     Indication: Type 1 diabetes mellitus
     Dosage: 12 UNITS AT 8AM IN THE MORNING 12 UNITS AT 10PM AT NIGHT, BID
     Dates: start: 2017

REACTIONS (4)
  - Blood glucose increased [Unknown]
  - Device defective [Unknown]
  - Hypoglycaemia [Unknown]
  - Off label use [Unknown]
